FAERS Safety Report 23107549 (Version 1)
Quarter: 2023Q4

REPORT INFORMATION
  Report Type: Spontaneous
  Country: GB (occurrence: GB)
  Receive Date: 20231026
  Receipt Date: 20231026
  Transmission Date: 20240110
  Serious: Yes (Other)
  Sender: FDA-Public Use
  Company Number: GB-GSKCCFEMEA-Case-01839067_AE-76535

PATIENT

DRUGS (1)
  1. ZEJULA [Suspect]
     Active Substance: NIRAPARIB
     Indication: Product used for unknown indication
     Dosage: UNK

REACTIONS (5)
  - Cerebrovascular accident [Unknown]
  - Constipation [Unknown]
  - Diarrhoea [Unknown]
  - Anxiety [Unknown]
  - Hypertension [Unknown]
